FAERS Safety Report 10070629 (Version 1)
Quarter: 2014Q2

REPORT INFORMATION
  Report Type: Spontaneous
  Country: GB (occurrence: GB)
  Receive Date: 20140410
  Receipt Date: 20140410
  Transmission Date: 20141212
  Serious: Yes (Other)
  Sender: FDA-Public Use
  Company Number: GB-B.I. PHARMACEUTICALS,INC./RIDGEFIELD-2014-BI-16284UK

PATIENT
  Age: 79 Year
  Sex: Female

DRUGS (6)
  1. TRAJENTA [Suspect]
     Indication: DIABETES MELLITUS
     Dosage: 1 ANZ
     Route: 048
     Dates: start: 20140301, end: 20140318
  2. BEZALIP [Concomitant]
     Route: 065
  3. CANDESARTAN [Concomitant]
     Route: 065
  4. FUROSEMIDE [Concomitant]
     Route: 065
  5. NEOTIGASON [Concomitant]
     Route: 065
  6. OMEPRAZOLE [Concomitant]
     Route: 065

REACTIONS (3)
  - Diarrhoea [Not Recovered/Not Resolved]
  - Abdominal pain [Not Recovered/Not Resolved]
  - Back pain [Not Recovered/Not Resolved]
